FAERS Safety Report 17511584 (Version 1)
Quarter: 2020Q1

REPORT INFORMATION
  Report Type: Spontaneous
  Country: TH (occurrence: TH)
  Receive Date: 20200308
  Receipt Date: 20200308
  Transmission Date: 20200409
  Serious: Yes (Life-Threatening, Hospitalization)
  Sender: FDA-Public Use
  Company Number: TH-B.I. PHARMACEUTICALS,INC./RIDGEFIELD-2019-BI-121544

PATIENT
  Age: 82 Year
  Sex: Female

DRUGS (2)
  1. PRADAXA [Suspect]
     Active Substance: DABIGATRAN ETEXILATE MESYLATE
     Indication: CEREBROVASCULAR ACCIDENT PROPHYLAXIS
     Route: 048
     Dates: start: 20171031, end: 201908
  2. PRADAXA [Suspect]
     Active Substance: DABIGATRAN ETEXILATE MESYLATE
     Indication: ATRIAL FIBRILLATION
     Route: 048
     Dates: end: 20191215

REACTIONS (6)
  - Pulmonary haemorrhage [Recovered/Resolved]
  - Lower gastrointestinal haemorrhage [Recovered/Resolved]
  - Hypoglycaemia [Unknown]
  - Acute kidney injury [Unknown]
  - Gastrointestinal haemorrhage [Recovered/Resolved]
  - Hepatic failure [Unknown]

NARRATIVE: CASE EVENT DATE: 201908
